FAERS Safety Report 7227129-7 (Version None)
Quarter: 2011Q1

REPORT INFORMATION
  Report Type: 
  Country: None (occurrence: None)
  Receive Date: 20110114
  Receipt Date: 20110110
  Transmission Date: 20110831
  Serious: Yes (Other)
  Sender: FDA-Public Use
  Company Number: SE-PFIZER INC-2011005525

PATIENT
  Age: 42 Year
  Sex: Female

DRUGS (1)
  1. DETRUSITOL SR [Suspect]
     Dosage: 4 MG, UNK
     Dates: start: 20070101, end: 20090101

REACTIONS (5)
  - APTYALISM [None]
  - VISION BLURRED [None]
  - VISUAL IMPAIRMENT [None]
  - ACCOMMODATION DISORDER [None]
  - DENTAL CARIES [None]
